FAERS Safety Report 16185718 (Version 2)
Quarter: 2019Q2

REPORT INFORMATION
  Report Type: Spontaneous
  Country: US (occurrence: US)
  Receive Date: 20190411
  Receipt Date: 20190507
  Transmission Date: 20190711
  Serious: Yes (Other)
  Sender: FDA-Public Use
  Company Number: US-BAYER-2019-070759

PATIENT
  Age: 21 Year
  Sex: Female

DRUGS (1)
  1. SKYLA [Suspect]
     Active Substance: LEVONORGESTREL
     Indication: CONTRACEPTION
     Dosage: 14 MCG/24HR, CONT
     Route: 015
     Dates: start: 20180307

REACTIONS (3)
  - Device expulsion [None]
  - Wrong technique in device usage process [None]
  - Device breakage [None]

NARRATIVE: CASE EVENT DATE: 20190326
